FAERS Safety Report 7580168-9 (Version None)
Quarter: 2011Q2

REPORT INFORMATION
  Report Type: 
  Country: None (occurrence: None)
  Receive Date: 20110629
  Receipt Date: 20090925
  Transmission Date: 20111010
  Serious: Yes (Death, Hospitalization, Other)
  Sender: FDA-Public Use
  Company Number: US-BAYER-2011-006109

PATIENT
  Age: 85 Year
  Sex: Male
  Weight: 82 kg

DRUGS (26)
  1. TRASYLOL [Suspect]
     Indication: CORONARY ARTERY BYPASS
     Dosage: 1 ML, UNK
     Route: 042
     Dates: start: 20040609, end: 20040609
  2. TRASYLOL [Suspect]
     Indication: MITRAL VALVE REPAIR
     Dosage: 100 ML, UNK
     Route: 042
     Dates: start: 20040609, end: 20040609
  3. CALCIUM CHLORIDE [Concomitant]
     Dosage: 1 GRAM, UNK
     Route: 042
     Dates: start: 20040609, end: 20040609
  4. RED BLOOD CELLS [Concomitant]
     Dosage: 750 CCS, UNK
     Dates: start: 20040609, end: 20040609
  5. ASPIRIN [Concomitant]
     Dosage: 81 MG, QD
     Route: 048
  6. HYDROCHLOROTHIAZIDE [Concomitant]
     Dosage: 25 MG, QD
     Route: 048
  7. IMDUR [Concomitant]
     Dosage: 60 MG, QD
     Route: 048
  8. VANCOMYCIN [Concomitant]
     Dosage: 1 GRAM, UNK
     Route: 042
     Dates: start: 20040609, end: 20040609
  9. VERSED [Concomitant]
     Dosage: 5 MG, UNK
     Route: 042
     Dates: start: 20040609, end: 20040609
  10. LIDOCAINE [Concomitant]
     Dosage: 100 MG, UNK
     Route: 042
     Dates: start: 20040609, end: 20040609
  11. DOBUTAMINE HCL [Concomitant]
     Dosage: 5 MCG/KG/MIN, UNK
     Route: 042
     Dates: start: 20040609, end: 20040609
  12. PROTAMINE SULFATE [Concomitant]
     Dosage: 400 MG, UNK
     Route: 042
     Dates: start: 20040609, end: 20040609
  13. TRASYLOL [Suspect]
     Dosage: 200 MG, UNK
     Dates: start: 20040609, end: 20040609
  14. LEVOPHED [Concomitant]
     Dosage: 0.1-0.5 MCG/KG/MIN, UNK
     Route: 042
     Dates: start: 20040609, end: 20040609
  15. HEPARIN [Concomitant]
     Dosage: 85, 000 UNITS, UNK
     Dates: start: 20040609, end: 20040609
  16. COUMADIN [Concomitant]
     Dosage: PRN
     Route: 048
  17. LOPRESSOR [Concomitant]
     Route: 048
  18. COZAAR [Concomitant]
     Dosage: 50 MG, QD
     Route: 048
  19. MANITOL [Concomitant]
     Dosage: 50 GRAMS, UNK
     Dates: start: 20040609, end: 20040609
  20. PROTAMINE SULFATE [Concomitant]
     Dosage: 400 MG, UNK
     Dates: start: 20040609, end: 20040609
  21. TRASYLOL [Suspect]
     Dosage: 50 ML/HR, UNK
     Route: 042
     Dates: start: 20040609, end: 20040609
  22. ATENOLOL [Concomitant]
     Dosage: 50 MG, QD
     Route: 048
  23. INTEGRILIN [Concomitant]
  24. PCP [Concomitant]
     Dosage: 8 MG, UNK
     Route: 042
     Dates: start: 20040609, end: 20040609
  25. HEPARIN [Concomitant]
     Dosage: 30, 000 UNITS, UNK
     Route: 042
     Dates: start: 20040609, end: 20040609
  26. SODIUM BICARBONATE [Concomitant]
     Dosage: 50 GRAMS, UNK
     Dates: start: 20040609, end: 20040609

REACTIONS (11)
  - PAIN [None]
  - MULTI-ORGAN FAILURE [None]
  - DEATH [None]
  - ANXIETY [None]
  - FEAR [None]
  - STRESS [None]
  - EMOTIONAL DISTRESS [None]
  - RENAL FAILURE [None]
  - RENAL INJURY [None]
  - UNEVALUABLE EVENT [None]
  - RENAL IMPAIRMENT [None]
